FAERS Safety Report 11966598 (Version 1)
Quarter: 2016Q1

REPORT INFORMATION
  Report Type: Spontaneous
  Country: US (occurrence: US)
  Receive Date: 20160127
  Receipt Date: 20160127
  Transmission Date: 20160526
  Serious: No
  Sender: FDA-Public Use
  Company Number: US-MYLANLABS-2015M1017877

PATIENT
  Sex: Female
  Weight: 70.68 kg

DRUGS (2)
  1. LETROZOLE. [Suspect]
     Active Substance: LETROZOLE
     Indication: ENDOCRINE DISORDER
     Dosage: UNK
     Dates: start: 200601, end: 200907
  2. LETROZOLE. [Suspect]
     Active Substance: LETROZOLE
     Indication: OFF LABEL USE
     Dosage: UNK
     Dates: start: 20150401

REACTIONS (2)
  - Osteoporosis [Not Recovered/Not Resolved]
  - Bone pain [Not Recovered/Not Resolved]
